FAERS Safety Report 9955630 (Version 2)
Quarter: 2014Q1

REPORT INFORMATION
  Report Type: Spontaneous
  Country: PR (occurrence: US)
  Receive Date: 20140304
  Receipt Date: 20140304
  Transmission Date: 20141002
  Serious: No
  Sender: FDA-Public Use
  Company Number: PR-ABBVIE-13P-131-1067887-00

PATIENT
  Age: 26 Year
  Sex: Female

DRUGS (7)
  1. HUMIRA [Suspect]
     Indication: RHEUMATOID ARTHRITIS
     Dates: end: 201204
  2. FOLIC ACID [Concomitant]
     Indication: RHEUMATOID ARTHRITIS
  3. PRENATAL VITAMINS [Concomitant]
     Indication: VITAMIN SUPPLEMENTATION
  4. PRENATAL VITAMINS [Concomitant]
     Indication: PREGNANCY
  5. PREDNISONE [Concomitant]
     Indication: RHEUMATOID ARTHRITIS
     Dosage: 3 TABS DAILY PRN
     Route: 048
  6. PREDNISONE [Concomitant]
     Indication: SWELLING
  7. LOCAL ANESTHESIA [Concomitant]
     Indication: LABOUR PAIN

REACTIONS (2)
  - Rheumatoid arthritis [Recovering/Resolving]
  - Swelling [Recovering/Resolving]
